FAERS Safety Report 8480887-6 (Version None)
Quarter: 2012Q3

REPORT INFORMATION
  Report Type: 
  Country: None (occurrence: None)
  Receive Date: 20120702
  Receipt Date: 20120619
  Transmission Date: 20120928
  Serious: Yes (Other)
  Sender: FDA-Public Use
  Company Number: JP-VERTEX PHARMACEUTICALS INC.-AE-2012-007026

PATIENT
  Age: 61 Year
  Sex: Female

DRUGS (20)
  1. URSO 250 [Concomitant]
     Route: 048
     Dates: start: 20120328, end: 20120606
  2. XYLOCAINE [Concomitant]
     Route: 058
     Dates: start: 20120312, end: 20120312
  3. TRANSAMINE CAP [Concomitant]
     Route: 041
     Dates: start: 20120312, end: 20120312
  4. URSO 250 [Concomitant]
     Route: 048
  5. ISOTONIC SODIUM CHLORIDE SOLUTION [Concomitant]
     Route: 041
     Dates: start: 20120312, end: 20120312
  6. ANTEBATE [Concomitant]
     Route: 061
     Dates: start: 20120323, end: 20120323
  7. PEGINTERFERON ALFA-2B [Concomitant]
     Indication: HEPATITIS C
     Route: 058
     Dates: start: 20120313
  8. ISOTONIC SODIUM CHLORIDE SOLUTION [Concomitant]
     Dates: start: 20120312, end: 20120312
  9. YUEKIN KEEP [Concomitant]
     Route: 041
     Dates: start: 20120312, end: 20120312
  10. PENTAZOCINE LACTATE [Concomitant]
     Dates: start: 20120312, end: 20120312
  11. ATARAX [Concomitant]
     Dates: start: 20120312, end: 20120312
  12. LANSOPRAZOLE [Concomitant]
     Route: 048
     Dates: start: 20120404, end: 20120606
  13. TELAVIC (TELAPREVIR) [Suspect]
     Indication: HEPATITIS C
     Route: 048
     Dates: start: 20120313, end: 20120410
  14. TELAVIC (TELAPREVIR) [Suspect]
     Route: 048
     Dates: start: 20120411, end: 20120418
  15. REBETOL [Concomitant]
     Indication: HEPATITIS C
     Route: 048
     Dates: start: 20120312, end: 20120327
  16. ADONA INJECTION [Concomitant]
     Route: 041
     Dates: start: 20120312, end: 20120312
  17. REBETOL [Concomitant]
     Route: 048
     Dates: start: 20120328, end: 20120411
  18. RIZE [Concomitant]
     Route: 048
     Dates: start: 20120404, end: 20120606
  19. YUEKIN KEEP [Concomitant]
     Route: 041
     Dates: start: 20120313, end: 20120313
  20. PIRETAZOL [Concomitant]
     Route: 041
     Dates: start: 20120312, end: 20120312

REACTIONS (3)
  - HAEMOGLOBIN DECREASED [None]
  - HAEMOGLOBIN [None]
  - WHITE BLOOD CELL COUNT DECREASED [None]
